FAERS Safety Report 5885995-1 (Version None)
Quarter: 2008Q3

REPORT INFORMATION
  Report Type: 
  Country: None (occurrence: None)
  Receive Date: 20080917
  Receipt Date: 20080907
  Transmission Date: 20090109
  Serious: Yes (Other)
  Sender: FDA-Public Use
  Company Number: US-ROCHE-584986

PATIENT

DRUGS (2)
  1. ROACCUTANE [Suspect]
     Indication: DRUG USE FOR UNKNOWN INDICATION
     Route: 065
  2. ROACCUTANE [Suspect]
     Route: 065
     Dates: end: 20080601

REACTIONS (4)
  - DEPRESSION [None]
  - DRY SKIN [None]
  - SUICIDE ATTEMPT [None]
  - VISUAL IMPAIRMENT [None]
